FAERS Safety Report 24262340 (Version 1)
Quarter: 2024Q3

REPORT INFORMATION
  Report Type: Spontaneous
  Country: IT (occurrence: IT)
  Receive Date: 20240829
  Receipt Date: 20240829
  Transmission Date: 20241016
  Serious: Yes (Death, Other)
  Sender: AMGEN
  Company Number: IT-AMGEN-ITASP2024168820

PATIENT
  Age: 64 Year
  Sex: Male

DRUGS (3)
  1. FILGRASTIM [Suspect]
     Active Substance: FILGRASTIM
     Indication: Chronic lymphocytic leukaemia
     Dosage: UNK
     Route: 065
  2. FLUDARABINE [Suspect]
     Active Substance: FLUDARABINE PHOSPHATE
     Indication: Chronic lymphocytic leukaemia
     Dosage: UNK
     Route: 065
  3. CYTARABINE [Suspect]
     Active Substance: CYTARABINE
     Indication: Chronic lymphocytic leukaemia
     Dosage: UNK
     Route: 065

REACTIONS (4)
  - Pneumonia [Fatal]
  - Chronic lymphocytic leukaemia recurrent [Unknown]
  - Granulocytopenia [Unknown]
  - Thrombocytopenia [Unknown]
